FAERS Safety Report 16257264 (Version 7)
Quarter: 2021Q3

REPORT INFORMATION
  Report Type: Report from Study
  Country: TR (occurrence: TR)
  Receive Date: 20190430
  Receipt Date: 20210921
  Transmission Date: 20211014
  Serious: Yes (Hospitalization)
  Sender: FDA-Public Use
  Company Number: TR-ROCHE-2308242

PATIENT
  Age: 68 Year
  Sex: Male
  Weight: 81 kg

DRUGS (49)
  1. ACETYLSALICYLIC ACID [Concomitant]
     Active Substance: ASPIRIN
     Indication: ARTERIOSCLEROSIS CORONARY ARTERY
     Dates: start: 2009
  2. RANITIDINE. [Concomitant]
     Active Substance: RANITIDINE
     Dates: start: 20190729, end: 20190729
  3. NACL [Concomitant]
     Active Substance: SODIUM CHLORIDE
     Indication: PREMEDICATION
     Dates: start: 20190228, end: 20190228
  4. NYSTATIN. [Concomitant]
     Active Substance: NYSTATIN
     Indication: PROPHYLAXIS
     Dates: start: 20190323, end: 20190323
  5. METOPROLOL SUCCINATE. [Concomitant]
     Active Substance: METOPROLOL SUCCINATE
     Indication: ARTERIOSCLEROSIS CORONARY ARTERY
     Dates: start: 2014
  6. RANITIDINE. [Concomitant]
     Active Substance: RANITIDINE
     Indication: PREMEDICATION
     Dates: start: 20190228, end: 20190228
  7. RANITIDINE. [Concomitant]
     Active Substance: RANITIDINE
     Dates: start: 20190502, end: 20190502
  8. PARACETAMOL [Concomitant]
     Active Substance: ACETAMINOPHEN
     Dates: start: 20190705, end: 20190705
  9. PARACETAMOL [Concomitant]
     Active Substance: ACETAMINOPHEN
     Dates: start: 20190301, end: 20190304
  10. NACL [Concomitant]
     Active Substance: SODIUM CHLORIDE
     Dates: start: 20190729, end: 20190729
  11. FLUCONAZOLE. [Concomitant]
     Active Substance: FLUCONAZOLE
     Indication: PROPHYLAXIS
     Dates: start: 20190322, end: 20190323
  12. DEXTROSE. [Concomitant]
     Active Substance: DEXTROSE
     Indication: BLOOD CREATININE INCREASED
     Dates: start: 20190302, end: 20190304
  13. PIPERACILLIN AND TAZOBACTAM [Concomitant]
     Active Substance: PIPERACILLIN SODIUM\TAZOBACTAM SODIUM
     Indication: INFUSION RELATED REACTION
  14. ISOTONIC SODIUM CHLORIDE SOLUTION [Concomitant]
     Active Substance: SODIUM CHLORIDE
     Dates: start: 20190321, end: 20190324
  15. ATEZOLIZUMAB. [Suspect]
     Active Substance: ATEZOLIZUMAB
     Indication: METASTATIC NEOPLASM
     Dosage: START TIME OF MOST RECENT DOSE OF ATEZOLIZUMAB PRIOR TO SAE ONSET AT 09.00 AM?DATE OF MOST RECENT DO
     Route: 042
     Dates: start: 20190228
  16. RANITIDINE. [Concomitant]
     Active Substance: RANITIDINE
     Indication: INFUSION RELATED REACTION
     Dates: start: 20190320, end: 20190320
  17. RANITIDINE. [Concomitant]
     Active Substance: RANITIDINE
     Dates: start: 20190705, end: 20190705
  18. NACL [Concomitant]
     Active Substance: SODIUM CHLORIDE
     Dates: start: 20190523, end: 20190523
  19. PARACETAMOL [Concomitant]
     Active Substance: ACETAMINOPHEN
     Indication: INFUSION RELATED REACTION
     Dates: start: 20190320, end: 20190321
  20. PARACETAMOL [Concomitant]
     Active Substance: ACETAMINOPHEN
     Indication: PYREXIA
     Dates: start: 20190410, end: 20190410
  21. NACL [Concomitant]
     Active Substance: SODIUM CHLORIDE
     Dates: start: 20190705, end: 20190705
  22. NACL [Concomitant]
     Active Substance: SODIUM CHLORIDE
     Dates: start: 20190228, end: 20190228
  23. DESLORATADINE. [Concomitant]
     Active Substance: DESLORATADINE
     Indication: RASH
     Dates: start: 20190319, end: 20191031
  24. DEXTROSE. [Concomitant]
     Active Substance: DEXTROSE
     Indication: INFUSION RELATED REACTION
  25. ISOTONIC SODIUM CHLORIDE SOLUTION [Concomitant]
     Active Substance: SODIUM CHLORIDE
     Indication: PREMEDICATION
     Dates: start: 20190228, end: 20190228
  26. ISOTONIC SODIUM CHLORIDE SOLUTION [Concomitant]
     Active Substance: SODIUM CHLORIDE
     Dates: start: 20190320, end: 20190320
  27. BELOC (TURKEY) [Concomitant]
     Indication: ARTERIOSCLEROSIS CORONARY ARTERY
     Dates: start: 2014
  28. RANITIDINE. [Concomitant]
     Active Substance: RANITIDINE
     Dates: start: 20190228, end: 20190228
  29. PARACETAMOL [Concomitant]
     Active Substance: ACETAMINOPHEN
     Dates: start: 20190729, end: 20190729
  30. NACL [Concomitant]
     Active Substance: SODIUM CHLORIDE
     Dates: start: 20190320, end: 20190320
  31. NACL [Concomitant]
     Active Substance: SODIUM CHLORIDE
     Dates: start: 20190410, end: 20190410
  32. HYPERTONIC SALINE SOLUTION [Concomitant]
     Active Substance: SODIUM CHLORIDE
     Indication: PROPHYLAXIS
     Dates: start: 20190323, end: 20190324
  33. PIPERACILLIN AND TAZOBACTAM [Concomitant]
     Active Substance: PIPERACILLIN SODIUM\TAZOBACTAM SODIUM
     Indication: PYREXIA
     Dates: start: 20190302, end: 20190304
  34. RESOURCE GLUTAMIN [Concomitant]
     Indication: WEIGHT DECREASED
     Dates: start: 20190322
  35. RANITIDINE. [Concomitant]
     Active Substance: RANITIDINE
     Dates: start: 20190410, end: 20190410
  36. RANITIDINE. [Concomitant]
     Active Substance: RANITIDINE
     Dates: start: 20190523, end: 20190523
  37. RANITIDINE. [Concomitant]
     Active Substance: RANITIDINE
     Dates: start: 20190301, end: 20190304
  38. PARACETAMOL [Concomitant]
     Active Substance: ACETAMINOPHEN
     Dates: start: 20190502, end: 20190502
  39. PARACETAMOL [Concomitant]
     Active Substance: ACETAMINOPHEN
     Dates: start: 20190320, end: 20190320
  40. NACL [Concomitant]
     Active Substance: SODIUM CHLORIDE
     Dates: start: 20190502, end: 20190502
  41. DICLOFENAC [Concomitant]
     Active Substance: DICLOFENAC
     Indication: PYREXIA
     Dates: start: 20190320, end: 20190321
  42. PANTOPRAZOLE [Concomitant]
     Active Substance: PANTOPRAZOLE
     Indication: PROPHYLAXIS
     Dates: start: 20190321, end: 20190325
  43. PARACETAMOL [Concomitant]
     Active Substance: ACETAMINOPHEN
     Dates: start: 20190523, end: 20190523
  44. PARACETAMOL [Concomitant]
     Active Substance: ACETAMINOPHEN
     Dates: start: 20190228, end: 20190228
  45. BETAMETHASONE. [Concomitant]
     Active Substance: BETAMETHASONE
     Indication: RASH
     Dates: start: 20190319, end: 20191031
  46. METOCLOPRAMIDE HCL [Concomitant]
     Active Substance: METOCLOPRAMIDE HYDROCHLORIDE
     Indication: PROPHYLAXIS
     Dates: start: 20190321, end: 20190325
  47. ISOTONIC SODIUM CHLORIDE SOLUTION [Concomitant]
     Active Substance: SODIUM CHLORIDE
     Indication: INFUSION RELATED REACTION
     Dates: start: 20210302, end: 20210304
  48. RO6874281 (FAP IL2V MAB) [Suspect]
     Active Substance: SIMLUKAFUSP ALFA
     Indication: METASTATIC NEOPLASM
     Dosage: ON 20/MAR/2019, AT 11.20 AM: DATE OF MOST RECENT DOSE (10 MG) OF RO6874281 PRIOR TO SAE ONSET.?TOTAL
     Route: 042
     Dates: start: 20190228
  49. PARACETAMOL [Concomitant]
     Active Substance: ACETAMINOPHEN
     Indication: PREMEDICATION
     Dates: start: 20190228, end: 20190301

REACTIONS (1)
  - Acute kidney injury [Recovered/Resolved]

NARRATIVE: CASE EVENT DATE: 20190321
